FAERS Safety Report 6588748-4 (Version None)
Quarter: 2010Q1

REPORT INFORMATION
  Report Type: 
  Country: None (occurrence: None)
  Receive Date: 20100218
  Receipt Date: 20100216
  Transmission Date: 20100710
  Serious: Yes (Other)
  Sender: FDA-Public Use
  Company Number: PHEH2008US01026

PATIENT

DRUGS (5)
  1. ELIDEL [Suspect]
     Indication: ECZEMA
     Route: 061
     Dates: start: 20030101
  2. SERTRALINE HCL [Concomitant]
     Route: 048
  3. INFLUENZA VACCINE [Concomitant]
  4. CHEMOTHERAPEUTICS NOS [Concomitant]
  5. RADIATION THERAPY [Concomitant]

REACTIONS (1)
  - HODGKIN'S DISEASE [None]
